FAERS Safety Report 4562159-5 (Version None)
Quarter: 2005Q1

REPORT INFORMATION
  Report Type: 
  Country: None (occurrence: None)
  Receive Date: 20050125
  Receipt Date: 20050111
  Transmission Date: 20050727
  Serious: Yes (Other)
  Sender: FDA-Public Use
  Company Number: GXKR2005GB00459

PATIENT
  Sex: Female
  Weight: 0.499 kg

DRUGS (13)
  1. FUROSEMIDE [Suspect]
     Indication: RENAL FAILURE ACUTE
     Dosage: 0.1 - 1 MG/KG/HR, INTRAVENOUS
     Route: 042
     Dates: start: 20041107, end: 20041109
  2. CEFOTAXIME SODIUM [Concomitant]
  3. AMOXICILLIN [Concomitant]
  4. TEICOPLANIN (TEICOPLANIN) [Concomitant]
  5. CAFFEINE CITRATE (CAFFEINE CITRATE) [Concomitant]
  6. GENTAMICIN [Concomitant]
  7. FLUCLOXACILLIN (FLUCLOXACILLIN) [Concomitant]
  8. FLUCONAZOLE [Concomitant]
  9. DOPAMINE (DOPAMINE) [Concomitant]
  10. MORPHINE SULFATE [Concomitant]
  11. SODIUM CHLORIDE 0.9% [Concomitant]
  12. PLATELETS [Concomitant]
  13. IRON SUPPLEMENTS (NO INGREDIENTS/SUBSTANCES) [Concomitant]

REACTIONS (1)
  - RENAL TUBULAR ACIDOSIS [None]
